FAERS Safety Report 5696174-5 (Version None)
Quarter: 2008Q2

REPORT INFORMATION
  Report Type: 
  Country: None (occurrence: None)
  Receive Date: 20080407
  Receipt Date: 20080327
  Transmission Date: 20081010
  Serious: Yes (Other)
  Sender: FDA-Public Use
  Company Number: US-AVENTIS-200811200US

PATIENT
  Sex: Male

DRUGS (12)
  1. KETEK [Suspect]
     Indication: PNEUMONIA
     Route: 048
     Dates: start: 20060327
  2. FLONASE [Concomitant]
     Route: 045
  3. QVAR 40 [Concomitant]
     Dosage: DOSE QUANTITY: 2
     Route: 055
  4. LORTAB [Concomitant]
     Dosage: DOSE QUANTITY: 7.5
     Route: 048
  5. HISTUSSIN HC [Concomitant]
     Indication: COUGH
     Dosage: DOSE: 1-2; DOSE UNIT: TEASPOON
  6. LEXAPRO [Concomitant]
  7. VALIUM [Concomitant]
     Indication: ANXIETY
     Route: 048
  8. ALLEGRA-D 12 HOUR [Concomitant]
     Route: 048
  9. DILANTIN [Concomitant]
     Route: 048
     Dates: end: 20061127
  10. PERCOCET [Concomitant]
     Dosage: DOSE: 10/325
     Route: 048
     Dates: end: 20061127
  11. TOPAMAX [Concomitant]
     Dosage: DOSE QUANTITY: 25
  12. MIRALAX [Concomitant]
     Dosage: DOSE: 3-4 SCOOPS
     Route: 048

REACTIONS (3)
  - AMMONIA INCREASED [None]
  - FATIGUE [None]
  - HEPATIC FAILURE [None]
